FAERS Safety Report 21824384 (Version 2)
Quarter: 2023Q1

REPORT INFORMATION
  Report Type: Spontaneous
  Country: IT (occurrence: IT)
  Receive Date: 20230105
  Receipt Date: 20230117
  Transmission Date: 20230418
  Serious: Yes (Hospitalization, Other)
  Sender: FDA-Public Use
  Company Number: None

PATIENT
  Age: 33 Year
  Sex: Female

DRUGS (2)
  1. AZITHROMYCIN [Suspect]
     Active Substance: AZITHROMYCIN
     Indication: Infection
     Dosage: 500 MG, 1X/DAY
     Route: 048
     Dates: start: 20221015, end: 20221015
  2. KETOPROFEN LYSINE [Suspect]
     Active Substance: KETOPROFEN LYSINE
     Indication: Inflammation
     Dosage: 1 DF, SINGLE
     Route: 048
     Dates: start: 20221015, end: 20221015

REACTIONS (2)
  - Eyelid oedema [Recovering/Resolving]
  - Bronchostenosis [Recovering/Resolving]

NARRATIVE: CASE EVENT DATE: 20221015
